FAERS Safety Report 16161678 (Version 3)
Quarter: 2019Q3

REPORT INFORMATION
  Report Type: Spontaneous
  Country: US (occurrence: US)
  Receive Date: 20190405
  Receipt Date: 20190716
  Transmission Date: 20191004
  Serious: Yes (Hospitalization, Other)
  Sender: FDA-Public Use
  Company Number: US-PFIZER INC-2019130929

PATIENT
  Age: 4 Decade
  Sex: Female

DRUGS (7)
  1. ZIPRASIDONE. [Concomitant]
     Active Substance: ZIPRASIDONE
     Dosage: UNK
  2. CLOTRIMAZOLE. [Concomitant]
     Active Substance: CLOTRIMAZOLE
     Dosage: UNK
  3. GEODON [ZIPRASIDONE HYDROCHLORIDE] [Concomitant]
     Dosage: UNK
  4. LISINOPRIL. [Concomitant]
     Active Substance: LISINOPRIL
     Dosage: 10 MG, UNK
  5. RISPERDAL [Concomitant]
     Active Substance: RISPERIDONE
     Dosage: UNK
  6. GABAPENTIN. [Concomitant]
     Active Substance: GABAPENTIN
     Dosage: 100 MG, UNK
     Dates: start: 20150904
  7. LYRICA [Suspect]
     Active Substance: PREGABALIN
     Dosage: 25 MG, 2X/DAY
     Route: 048
     Dates: end: 20190405

REACTIONS (41)
  - Eye disorder [Not Recovered/Not Resolved]
  - Increased appetite [Not Recovered/Not Resolved]
  - Ear pain [Unknown]
  - Bursitis [Unknown]
  - Neuropathy peripheral [Unknown]
  - Vaginal haemorrhage [Unknown]
  - Mental impairment [Unknown]
  - Lipoma [Unknown]
  - Arthralgia [Unknown]
  - Electromyogram abnormal [Unknown]
  - Spinal osteoarthritis [Unknown]
  - Cardiovascular disorder [Unknown]
  - Varicose vein [Unknown]
  - Synovitis [Unknown]
  - Hallucination, visual [Unknown]
  - Tenosynovitis stenosans [Unknown]
  - Carpal tunnel syndrome [Unknown]
  - Arthropathy [Unknown]
  - Fall [Unknown]
  - Ligament sprain [Unknown]
  - Skin disorder [Unknown]
  - Cerebrovascular accident [Not Recovered/Not Resolved]
  - Headache [Not Recovered/Not Resolved]
  - Musculoskeletal pain [Unknown]
  - Joint swelling [Unknown]
  - Eye pain [Unknown]
  - Rotator cuff syndrome [Unknown]
  - Pain [Unknown]
  - Weight increased [Not Recovered/Not Resolved]
  - Facial pain [Not Recovered/Not Resolved]
  - Rash [Not Recovered/Not Resolved]
  - Hallucination, auditory [Unknown]
  - Foot deformity [Unknown]
  - Vaginal prolapse [Not Recovered/Not Resolved]
  - Seizure [Unknown]
  - Contusion [Not Recovered/Not Resolved]
  - Dizziness [Unknown]
  - Morton^s neuralgia [Unknown]
  - Tendonitis [Unknown]
  - Tooth disorder [Not Recovered/Not Resolved]
  - Lordosis [Unknown]

NARRATIVE: CASE EVENT DATE: 2002
